FAERS Safety Report 7124731-8 (Version None)
Quarter: 2010Q4

REPORT INFORMATION
  Report Type: 
  Country: None (occurrence: None)
  Receive Date: 20101129
  Receipt Date: 20101118
  Transmission Date: 20110411
  Serious: Yes (Hospitalization)
  Sender: FDA-Public Use
  Company Number: JP-JNJFOC-20101106980

PATIENT
  Age: 73 Year
  Sex: Male
  Weight: 70 kg

DRUGS (16)
  1. REMICADE [Suspect]
     Indication: PSORIASIS
     Route: 042
  2. REMICADE [Suspect]
     Route: 042
  3. REMICADE [Suspect]
     Route: 042
  4. REMICADE [Suspect]
     Route: 042
  5. REMICADE [Suspect]
     Route: 042
  6. ISCOTIN [Concomitant]
     Indication: ANTIBIOTIC PROPHYLAXIS
  7. ISCOTIN [Concomitant]
  8. PANDEL CRESA [Concomitant]
     Indication: PSORIASIS
  9. OXAROL [Concomitant]
     Indication: PSORIASIS
  10. ANTEBATE [Concomitant]
     Indication: PSORIASIS
  11. GASTER D [Concomitant]
     Indication: ANGINA PECTORIS
     Route: 048
  12. ITOROL [Concomitant]
     Indication: ANGINA PECTORIS
  13. RENIVACE [Concomitant]
     Indication: ANGINA PECTORIS
     Route: 048
  14. LIVALO [Concomitant]
     Indication: HYPERURICAEMIA
     Route: 048
  15. TICLOPIDINE HCL [Concomitant]
     Indication: ANGINA PECTORIS
     Route: 048
  16. PURSENNID [Concomitant]
     Indication: CONSTIPATION
     Route: 048

REACTIONS (1)
  - ACUTE MYOCARDIAL INFARCTION [None]
